FAERS Safety Report 15479622 (Version 1)
Quarter: 2018Q4

REPORT INFORMATION
  Report Type: Spontaneous
  Country: US (occurrence: US)
  Receive Date: 20181009
  Receipt Date: 20181009
  Transmission Date: 20190205
  Serious: No
  Sender: FDA-Public Use
  Company Number: US-SHIRE-US201838739

PATIENT
  Sex: Female

DRUGS (2)
  1. VPRIV [Suspect]
     Active Substance: VELAGLUCERASE ALFA
     Indication: GAUCHER^S DISEASE TYPE I
     Dosage: UNK, 1X/WEEK
     Route: 042
     Dates: start: 20100624
  2. VPRIV [Suspect]
     Active Substance: VELAGLUCERASE ALFA
     Indication: OFF LABEL USE

REACTIONS (3)
  - Platelet count decreased [Unknown]
  - Off label use [Unknown]
  - White blood cell count increased [Unknown]
